FAERS Safety Report 5441148-2 (Version None)
Quarter: 2007Q3

REPORT INFORMATION
  Report Type: 
  Country: None (occurrence: None)
  Receive Date: 20070831
  Receipt Date: 20070822
  Transmission Date: 20080115
  Serious: Yes (Hospitalization, Other)
  Sender: FDA-Public Use
  Company Number: BR-PFIZER INC-2007068571

PATIENT
  Sex: Female

DRUGS (4)
  1. FRONTAL [Suspect]
     Indication: ANXIETY
     Route: 048
  2. FRONTAL [Suspect]
     Indication: INSOMNIA
  3. ALPRAZOLAM [Suspect]
  4. SUSTRATE [Concomitant]
     Route: 048

REACTIONS (9)
  - ARRHYTHMIA [None]
  - BLOOD CHOLESTEROL INCREASED [None]
  - BRUXISM [None]
  - CORONARY ARTERY BYPASS [None]
  - DRUG INEFFECTIVE [None]
  - HYPERTENSION [None]
  - TACHYCARDIA [None]
  - VENOUS OCCLUSION [None]
  - WEIGHT INCREASED [None]
